FAERS Safety Report 13575753 (Version 2)
Quarter: 2017Q2

REPORT INFORMATION
  Report Type: Report from Study
  Country: ES (occurrence: ES)
  Receive Date: 20170524
  Receipt Date: 20170530
  Transmission Date: 20170830
  Serious: Yes (Hospitalization)
  Sender: FDA-Public Use
  Company Number: ES-BRISTOL-MYERS SQUIBB COMPANY-BMS-2017-040964

PATIENT
  Sex: Female
  Weight: 58 kg

DRUGS (13)
  1. NIVOLUMAB [Suspect]
     Active Substance: NIVOLUMAB
     Indication: HEPATOCELLULAR CARCINOMA
     Dosage: 1 DF, QD
     Route: 042
     Dates: start: 20160104, end: 20170308
  2. AERIUS                             /01009701/ [Concomitant]
     Active Substance: EBASTINE
     Indication: PREMEDICATION
     Dosage: UNK
     Route: 065
     Dates: start: 20170417, end: 20170422
  3. FERROGRADUMET [Concomitant]
     Indication: PRODUCT USED FOR UNKNOWN INDICATION
     Dosage: UNK
     Route: 065
     Dates: start: 201602
  4. MOVICOL [Concomitant]
     Active Substance: POLYETHYLENE GLYCOL 3350\POTASSIUM CHLORIDE\SODIUM BICARBONATE\SODIUM CHLORIDE
     Indication: PRODUCT USED FOR UNKNOWN INDICATION
     Dosage: UNK
     Route: 065
     Dates: start: 20160118
  5. LORAZEPAM. [Concomitant]
     Active Substance: LORAZEPAM
     Indication: PRODUCT USED FOR UNKNOWN INDICATION
     Dosage: UNK
     Route: 065
     Dates: start: 20161108
  6. POLARAMINE [Concomitant]
     Active Substance: DEXCHLORPHENIRAMINE MALEATE
     Indication: PREMEDICATION
     Dosage: UNK
     Route: 065
     Dates: start: 20170419, end: 20170419
  7. EUTIROX [Concomitant]
     Active Substance: LEVOTHYROXINE SODIUM
     Indication: PRODUCT USED FOR UNKNOWN INDICATION
     Dosage: 137 MG, UNK
     Route: 065
     Dates: start: 20160323
  8. IPILIMUMAB [Suspect]
     Active Substance: IPILIMUMAB
     Indication: HEPATOCELLULAR CARCINOMA
     Dosage: UNK
     Route: 042
     Dates: start: 20160104, end: 20160308
  9. INSULINE                           /01223401/ [Concomitant]
     Active Substance: INSULIN NOS
     Indication: PRODUCT USED FOR UNKNOWN INDICATION
     Dosage: UNK
     Route: 065
     Dates: start: 20161222
  10. MONTELUKAST [Concomitant]
     Active Substance: MONTELUKAST SODIUM
     Indication: PREMEDICATION
     Dosage: UNK
     Route: 065
     Dates: start: 20170419, end: 20170419
  11. AAS [Concomitant]
     Active Substance: ASPIRIN
     Indication: PREMEDICATION
     Dosage: UNK
     Route: 065
     Dates: start: 20170419, end: 20170419
  12. HIDROCORTISONA                     /00028601/ [Concomitant]
     Indication: PREMEDICATION
     Dosage: 100 MG, UNK
     Route: 065
     Dates: start: 20170419, end: 20170419
  13. ZANTAC [Concomitant]
     Active Substance: RANITIDINE HYDROCHLORIDE
     Indication: PREMEDICATION
     Dosage: UNK
     Route: 065
     Dates: start: 20170419, end: 20170419

REACTIONS (1)
  - Hyponatraemia [Recovering/Resolving]
